FAERS Safety Report 16025131 (Version 1)
Quarter: 2019Q1

REPORT INFORMATION
  Report Type: Spontaneous
  Country: US (occurrence: US)
  Receive Date: 20190301
  Receipt Date: 20190301
  Transmission Date: 20190418
  Serious: No
  Sender: FDA-Public Use
  Company Number: US-SA-2019SA056010

PATIENT
  Age: 56 Year
  Sex: Female

DRUGS (3)
  1. ASPIRIN (E.C.) [Concomitant]
     Active Substance: ASPIRIN
     Dosage: 81 MG
  2. TESTOSTERONE. [Concomitant]
     Active Substance: TESTOSTERONE
  3. PRALUENT [Suspect]
     Active Substance: ALIROCUMAB
     Indication: HYPERLIPIDAEMIA
     Dosage: 75 MG, QOW
     Route: 058

REACTIONS (3)
  - Intervertebral disc protrusion [Unknown]
  - Road traffic accident [Unknown]
  - Myalgia [Unknown]

NARRATIVE: CASE EVENT DATE: 201807
